FAERS Safety Report 8180490-1 (Version None)
Quarter: 2012Q1

REPORT INFORMATION
  Report Type: 
  Country: None (occurrence: None)
  Receive Date: 20120229
  Receipt Date: 20120216
  Transmission Date: 20120608
  Serious: Yes (Hospitalization)
  Sender: FDA-Public Use
  Company Number: TCI2011A06859

PATIENT
  Age: 80 Year
  Sex: Male

DRUGS (9)
  1. FAMOTIDINE [Concomitant]
  2. MUCOSOLVAN L (AMBROXOL HYDROCHLORIDE) [Concomitant]
  3. EXFORGE [Concomitant]
  4. NORVASC [Concomitant]
  5. ACTOS [Suspect]
     Indication: DIABETES MELLITUS
     Dosage: 15 MG (15 MG,1 IN 1 D) PER ORAL
     Route: 048
     Dates: start: 20060502, end: 20110729
  6. AMARYL [Concomitant]
  7. DIOVAN [Concomitant]
  8. PRAVASTAN (PRAVASTATNI SODIUM) [Concomitant]
  9. KINEDAK (EPALRESTAT) [Concomitant]

REACTIONS (9)
  - HYPOPHAGIA [None]
  - BLADDER TRANSITIONAL CELL CARCINOMA [None]
  - RENAL IMPAIRMENT [None]
  - PANCREATIC CYST [None]
  - CHOLELITHIASIS [None]
  - BENIGN PROSTATIC HYPERPLASIA [None]
  - VOMITING [None]
  - SPLENOMEGALY [None]
  - LIVER DISORDER [None]
